FAERS Safety Report 17762483 (Version 1)
Quarter: 2020Q2

REPORT INFORMATION
  Report Type: Spontaneous
  Country: US (occurrence: US)
  Receive Date: 20200508
  Receipt Date: 20200508
  Transmission Date: 20200714
  Serious: Yes (Other)
  Sender: FDA-Public Use
  Company Number: US-PFIZER INC-2020181610

PATIENT
  Age: 44 Year
  Sex: Female

DRUGS (6)
  1. FLUOROURACIL. [Concomitant]
     Active Substance: FLUOROURACIL
     Dosage: UNK, CYCLIC, (PROGRESSED WITHIN ONLY 4 CYCLES OF TREATMENT)
  2. LEUCOVORINE [Concomitant]
     Active Substance: LEUCOVORIN
     Dosage: UNK, CYCLIC, (PROGRESSED WITHIN ONLY 4 CYCLES OF TREATMENT)
  3. FLUOROURACIL. [Concomitant]
     Active Substance: FLUOROURACIL
     Indication: COLON CANCER METASTATIC
     Dosage: UNK , CYCLIC  (12 CYCLES)
  4. OXALIPLATIN. [Suspect]
     Active Substance: OXALIPLATIN
     Indication: COLON CANCER METASTATIC
     Dosage: UNK, CYCLIC, (8 CYCLES)
  5. THIAMINE. [Concomitant]
     Active Substance: THIAMINE
     Indication: SUPPLEMENTATION THERAPY
     Dosage: UNK
  6. LEUCOVORINE [Concomitant]
     Active Substance: LEUCOVORIN
     Indication: COLON CANCER METASTATIC
     Dosage: UNK, CYCLIC (12 CYCLES)

REACTIONS (1)
  - Neuropathy peripheral [Unknown]
